FAERS Safety Report 19166096 (Version 1)
Quarter: 2021Q2

REPORT INFORMATION
  Report Type: Report from Study
  Country: None (occurrence: US)
  Receive Date: 20210422
  Receipt Date: 20210422
  Transmission Date: 20210717
  Serious: Yes (Hospitalization)
  Sender: FDA-Public Use
  Company Number: US-ABBVIE-21K-163-3865539-00

PATIENT
  Sex: Male

DRUGS (1)
  1. VENCLEXTA [Suspect]
     Active Substance: VENETOCLAX
     Indication: CHRONIC LYMPHOCYTIC LEUKAEMIA
     Route: 048
     Dates: start: 20200427, end: 202104

REACTIONS (7)
  - Impaired healing [Not Recovered/Not Resolved]
  - White blood cell count abnormal [Not Recovered/Not Resolved]
  - Immune system disorder [Not Recovered/Not Resolved]
  - Skin infection [Not Recovered/Not Resolved]
  - Neutropenia [Not Recovered/Not Resolved]
  - Diabetes mellitus [Not Recovered/Not Resolved]
  - Skin disorder [Not Recovered/Not Resolved]
